FAERS Safety Report 5798419-X (Version None)
Quarter: 2008Q2

REPORT INFORMATION
  Report Type: 
  Country: None (occurrence: None)
  Receive Date: 20080630
  Receipt Date: 20080616
  Transmission Date: 20081010
  Serious: No
  Sender: FDA-Public Use
  Company Number: 001441

PATIENT
  Age: 85 Year
  Sex: Female

DRUGS (4)
  1. PLETAL [Suspect]
     Indication: ARTERIOSCLEROSIS OBLITERANS
     Dosage: 100 MG, BID; ORAL
     Route: 048
     Dates: start: 20080201, end: 20080322
  2. ASPIRIN [Concomitant]
  3. ARB (ARB) [Concomitant]
  4. DIURETICS [Concomitant]

REACTIONS (2)
  - DIALYSIS [None]
  - RENAL FAILURE ACUTE [None]
